FAERS Safety Report 8986139 (Version 1)
Quarter: 2012Q4

REPORT INFORMATION
  Report Type: Spontaneous
  Country: US (occurrence: None)
  Receive Date: 20121219
  Receipt Date: 20121219
  Transmission Date: 20130627
  Serious: Yes (Life-Threatening)
  Sender: FDA-Public Use
  Company Number: None

PATIENT
  Age: 81 Year
  Sex: Male
  Weight: 64 kg

DRUGS (2)
  1. DEXTROSE\HEPARIN [Suspect]
     Indication: ATRIAL FIBRILLATION
     Route: 042
     Dates: start: 20121204, end: 20121208
  2. CLOPIDOGREL [Suspect]
     Indication: VASCULAR OPERATION
     Route: 048
     Dates: start: 20121207

REACTIONS (3)
  - Haemorrhage [None]
  - Hypotension [None]
  - Tachycardia [None]
